FAERS Safety Report 14608832 (Version 1)
Quarter: 2018Q1

REPORT INFORMATION
  Report Type: Spontaneous
  Country: US (occurrence: US)
  Receive Date: 20180306
  Receipt Date: 20180306
  Transmission Date: 20180509
  Serious: Yes (Disabling)
  Sender: FDA-Public Use
  Company Number: None

PATIENT
  Age: 67 Year
  Sex: Female

DRUGS (6)
  1. ARTHROTEC [Concomitant]
     Active Substance: DICLOFENAC SODIUM\MISOPROSTOL
  2. MULTIVITAMIN [Concomitant]
     Active Substance: VITAMINS
  3. L - THYROXINE [Suspect]
     Active Substance: LEVOTHYROXINE SODIUM
     Indication: AUTOIMMUNE THYROIDITIS
     Route: 048
  4. NASONEX [Concomitant]
     Active Substance: MOMETASONE FUROATE
  5. ARMOUR THYROID [Concomitant]
     Active Substance: THYROID, PORCINE
  6. ALLEGRA [Concomitant]
     Active Substance: FEXOFENADINE HYDROCHLORIDE

REACTIONS (8)
  - Dry skin [None]
  - Tri-iodothyronine decreased [None]
  - Increased appetite [None]
  - Fatigue [None]
  - Temperature intolerance [None]
  - Weight increased [None]
  - Somnolence [None]
  - Asthenia [None]

NARRATIVE: CASE EVENT DATE: 20171205
